FAERS Safety Report 10877532 (Version 1)
Quarter: 2015Q1

REPORT INFORMATION
  Report Type: Spontaneous
  Country: US (occurrence: None)
  Receive Date: 20150224
  Receipt Date: 20150224
  Transmission Date: 20150721
  Serious: Yes (Hospitalization)
  Sender: FDA-Public Use
  Company Number: 2750819

PATIENT
  Age: 15 Year
  Sex: Female

DRUGS (1)
  1. KETAMINE HYDROCHLORIDE. [Suspect]
     Active Substance: KETAMINE HYDROCHLORIDE

REACTIONS (4)
  - Biliary dilatation [None]
  - Drug abuse [None]
  - Urinary tract infection [None]
  - Hydronephrosis [None]
